FAERS Safety Report 5228811-3 (Version None)
Quarter: 2007Q1

REPORT INFORMATION
  Report Type: 
  Country: None (occurrence: None)
  Receive Date: 20070131
  Receipt Date: 20070117
  Transmission Date: 20070707
  Serious: Yes (Hospitalization)
  Sender: FDA-Public Use
  Company Number: S06-CAN-04852-01

PATIENT
  Age: 33 Year
  Sex: Female

DRUGS (3)
  1. CIPRALEX (ESCITALOPRAM) [Suspect]
     Indication: DEPRESSION
     Dosage: 30 MG QD PO
     Route: 048
     Dates: start: 20060901, end: 20061101
  2. SEROQUEL [Concomitant]
  3. CLONAZEPAM [Concomitant]

REACTIONS (2)
  - CONVULSION [None]
  - PRESCRIBED OVERDOSE [None]
